FAERS Safety Report 8869210 (Version 1)
Quarter: 2012Q4

REPORT INFORMATION
  Report Type: 
  Country: US (occurrence: US)
  Receive Date: 20121023
  Receipt Date: 20121023
  Transmission Date: 20130627
  Serious: No
  Sender: FDA-Public Use
  Company Number: US-AMGEN-USASP2012054435

PATIENT
  Sex: Female

DRUGS (3)
  1. ENBREL [Suspect]
     Indication: RHEUMATOID ARTHRITIS
     Dosage: 50 mg, qwk
     Route: 058
     Dates: start: 20010801
  2. ENBREL [Suspect]
     Indication: SJOGREN^S SYNDROME
  3. ALLERGY MEDICATION [Concomitant]

REACTIONS (4)
  - Seasonal allergy [Not Recovered/Not Resolved]
  - Vision blurred [Not Recovered/Not Resolved]
  - Somnolence [Not Recovered/Not Resolved]
  - Sinusitis [Recovered/Resolved]
